FAERS Safety Report 8471524-5 (Version None)
Quarter: 2012Q2

REPORT INFORMATION
  Report Type: 
  Country: None (occurrence: None)
  Receive Date: 20120323
  Receipt Date: 20111104
  Transmission Date: 20120825
  Serious: Yes (Hospitalization)
  Sender: FDA-Public Use
  Company Number: 163-21880-11110932

PATIENT
  Age: 61 Year
  Sex: Male

DRUGS (5)
  1. REVLIMID [Suspect]
     Indication: MULTIPLE MYELOMA
     Dosage: 5 MG, TIW 2 WEEKS ON, 2 WEEKS OFF, PO
     Route: 048
     Dates: start: 20081101
  2. REVLIMID [Suspect]
     Indication: MULTIPLE MYELOMA
     Dosage: 5 MG, TIW 2 WEEKS ON, 2 WEEKS OFF, PO
     Route: 048
     Dates: start: 20090901
  3. REVLIMID [Suspect]
     Indication: MULTIPLE MYELOMA
     Dosage: 5 MG, TIW 2 WEEKS ON, 2 WEEKS OFF, PO
     Route: 048
     Dates: start: 20100101
  4. REVLIMID [Suspect]
     Indication: MULTIPLE MYELOMA
     Dosage: 5 MG, TIW 2 WEEKS ON, 2 WEEKS OFF, PO
     Route: 048
     Dates: start: 20090501
  5. REVLIMID [Suspect]
     Indication: MULTIPLE MYELOMA
     Dosage: 5 MG, TIW 2 WEEKS ON, 2 WEEKS OFF, PO
     Route: 048
     Dates: start: 20101101

REACTIONS (1)
  - THROMBOCYTOPENIA [None]
